FAERS Safety Report 4413996-9 (Version None)
Quarter: 2004Q3

REPORT INFORMATION
  Report Type: 
  Country: None (occurrence: None)
  Receive Date: 20040728
  Receipt Date: 20040715
  Transmission Date: 20050211
  Serious: Yes (Hospitalization)
  Sender: FDA-Public Use
  Company Number: 2004-BP-03951AU (0)

PATIENT
  Age: 69 Year
  Sex: Male

DRUGS (7)
  1. SPIRIVA [Suspect]
     Indication: CHRONIC OBSTRUCTIVE AIRWAYS DISEASE
     Dosage: 18 MCG (18MCG, 18 MCG INHALED ONCE DAILY) IH
     Route: 055
     Dates: start: 20040301, end: 20040420
  2. SALBUTAMOL (SALBUTAMOL) [Concomitant]
  3. FUROSEMIDE [Concomitant]
  4. PREDNISONE [Concomitant]
  5. PAROXETINE HCL [Concomitant]
  6. WARFARIN (WARFARIN) [Concomitant]
  7. BUDESONIDE (BUDESONIDE) [Concomitant]

REACTIONS (1)
  - PHARYNGOLARYNGEAL PAIN [None]
